FAERS Safety Report 5301954-1 (Version None)
Quarter: 2007Q2

REPORT INFORMATION
  Report Type: 
  Country: None (occurrence: None)
  Receive Date: 20070419
  Receipt Date: 20070413
  Transmission Date: 20071010
  Serious: Yes (Hospitalization, Other)
  Sender: FDA-Public Use
  Company Number: BR-BRISTOL-MYERS SQUIBB COMPANY-13748579

PATIENT
  Age: 67 Year
  Sex: Male

DRUGS (2)
  1. SINEMET CR [Suspect]
     Indication: PARKINSON'S DISEASE
     Route: 048
  2. AMANTADINE HCL [Suspect]

REACTIONS (9)
  - BACK PAIN [None]
  - COMPULSIONS [None]
  - DEPRESSION [None]
  - DRUG ABUSER [None]
  - DRUG DEPENDENCE [None]
  - DRUG EFFECT DECREASED [None]
  - DYSKINESIA [None]
  - DYSPHORIA [None]
  - MOTOR DYSFUNCTION [None]
